FAERS Safety Report 17739899 (Version 2)
Quarter: 2020Q3

REPORT INFORMATION
  Report Type: Report from Study
  Country: None (occurrence: US)
  Receive Date: 20200504
  Receipt Date: 20200915
  Transmission Date: 20201102
  Serious: Yes (Hospitalization, Other)
  Sender: FDA-Public Use
  Company Number: US-ABBVIE-20K-163-3340776-00

PATIENT
  Sex: Female

DRUGS (2)
  1. HUMIRA [Suspect]
     Active Substance: ADALIMUMAB
     Route: 058
  2. HUMIRA [Suspect]
     Active Substance: ADALIMUMAB
     Indication: CROHN^S DISEASE
     Route: 058

REACTIONS (5)
  - Haemoglobin abnormal [Unknown]
  - Malaise [Unknown]
  - Acute kidney injury [Unknown]
  - Dehydration [Not Recovered/Not Resolved]
  - Gastroenteritis viral [Unknown]

NARRATIVE: CASE EVENT DATE: 2020
